FAERS Safety Report 7643122-4 (Version None)
Quarter: 2011Q3

REPORT INFORMATION
  Report Type: 
  Country: None (occurrence: None)
  Receive Date: 20110729
  Receipt Date: 20110721
  Transmission Date: 20111222
  Serious: Yes (Hospitalization)
  Sender: FDA-Public Use
  Company Number: US-BIOGENIDEC-2010BI010161

PATIENT
  Age: 42 Year
  Sex: Female

DRUGS (3)
  1. TYSABRI [Suspect]
     Indication: MULTIPLE SCLEROSIS
     Route: 042
     Dates: start: 20090814, end: 20091114
  2. ANTI-DEPRESSANT (NOS) [Concomitant]
     Indication: MUSCULOSKELETAL STIFFNESS
  3. TYSABRI [Suspect]
     Route: 042
     Dates: start: 20101130

REACTIONS (8)
  - CONTUSION [None]
  - ABASIA [None]
  - LOCALISED INFECTION [None]
  - VICTIM OF CRIME [None]
  - LOWER LIMB FRACTURE [None]
  - FALL [None]
  - DECUBITUS ULCER [None]
  - MUSCULOSKELETAL STIFFNESS [None]
